FAERS Safety Report 9271711 (Version 1)
Quarter: 2013Q2

REPORT INFORMATION
  Report Type: Spontaneous
  Country: US (occurrence: US)
  Receive Date: 20130506
  Receipt Date: 20130506
  Transmission Date: 20140414
  Serious: No
  Sender: FDA-Public Use
  Company Number: US-COVIDIEN/TYCO HEALTHCARE/MALLINCKRODT-T201202771

PATIENT
  Age: 79 Year
  Sex: Female

DRUGS (5)
  1. HYDROCODONE/ACETAMINOPHEN [Suspect]
     Indication: BACK PAIN
     Dosage: UNK
     Dates: start: 20120618, end: 20120706
  2. OXYCODONE [Suspect]
     Indication: BACK PAIN
     Dosage: 5 MG EVERY 6 HOURS
     Dates: start: 20120706
  3. ACETAMINOPHEN [Concomitant]
     Dosage: UNK
  4. IBUPROFEN [Concomitant]
     Dosage: UNK
  5. MULTIVITAMIN                       /00831701/ [Concomitant]
     Dosage: UNK

REACTIONS (1)
  - Diarrhoea [Recovered/Resolved]
